FAERS Safety Report 10617878 (Version 2)
Quarter: 2014Q4

REPORT INFORMATION
  Report Type: Spontaneous
  Country: US (occurrence: US)
  Receive Date: 20141201
  Receipt Date: 20141223
  Transmission Date: 20150529
  Serious: Yes (Other)
  Sender: FDA-Public Use
  Company Number: PHEH2014US022741

PATIENT
  Age: 50 Year
  Sex: Female
  Weight: 104 kg

DRUGS (7)
  1. LIPITOR [Concomitant]
     Active Substance: ATORVASTATIN CALCIUM
     Indication: TYPE 2 DIABETES MELLITUS
     Dosage: 40 MG
     Route: 048
  2. LYRICA [Concomitant]
     Active Substance: PREGABALIN
     Indication: TYPE 2 DIABETES MELLITUS
     Dosage: 75 MG, QD
     Route: 048
  3. METFORMIN [Concomitant]
     Active Substance: METFORMIN HYDROCHLORIDE
     Indication: TYPE 2 DIABETES MELLITUS
     Dosage: 2000 MG, QD
     Route: 048
  4. CYMBALTA [Concomitant]
     Active Substance: DULOXETINE HYDROCHLORIDE
     Indication: DEPRESSION
     Dosage: 60 MG
     Route: 048
  5. SIGNIFOR [Suspect]
     Active Substance: PASIREOTIDE
     Indication: PITUITARY-DEPENDENT CUSHING^S SYNDROME
     Dosage: 0.3 MG, BID
     Route: 058
     Dates: start: 201408, end: 201410
  6. SIGNIFOR [Suspect]
     Active Substance: PASIREOTIDE
     Dosage: 0.3 MG, QD
     Route: 058
  7. LOSARTAN [Concomitant]
     Active Substance: LOSARTAN
     Indication: TYPE 2 DIABETES MELLITUS
     Dosage: 50 MG
     Route: 048

REACTIONS (8)
  - Abdominal pain upper [Recovered/Resolved]
  - Lipase increased [Recovered/Resolved]
  - Amylase increased [Recovered/Resolved]
  - Nausea [Recovered/Resolved]
  - Pancreatitis [Recovered/Resolved]
  - Back pain [Recovered/Resolved]
  - Vomiting [Recovered/Resolved]
  - Abdominal tenderness [Recovered/Resolved]

NARRATIVE: CASE EVENT DATE: 20141001
